FAERS Safety Report 5816079-6 (Version None)
Quarter: 2008Q3

REPORT INFORMATION
  Report Type: 
  Country: None (occurrence: None)
  Receive Date: 20080716
  Receipt Date: 20080716
  Transmission Date: 20090109
  Serious: No
  Sender: FDA-Public Use
  Company Number: None

PATIENT

DRUGS (1)
  1. VENOFER [Suspect]
     Indication: IRON DEFICIENCY
     Dosage: IV DRIP  (DURATION: ONE DOSE ON ONE DAY)
     Route: 041

REACTIONS (2)
  - ARTHRALGIA [None]
  - MYALGIA [None]
